FAERS Safety Report 5601784-7 (Version None)
Quarter: 2008Q1

REPORT INFORMATION
  Report Type: 
  Country: None (occurrence: None)
  Receive Date: 20080124
  Receipt Date: 20080116
  Transmission Date: 20080703
  Serious: Yes (Other)
  Sender: FDA-Public Use
  Company Number: CA-MERCK-0801CAN00158

PATIENT
  Age: 59 Year
  Sex: Male

DRUGS (2)
  1. ZETIA [Suspect]
     Route: 048
  2. ZOCOR [Concomitant]
     Route: 065

REACTIONS (2)
  - BLOOD URINE PRESENT [None]
  - RENAL CYST [None]
